FAERS Safety Report 4468923-5 (Version None)
Quarter: 2004Q3

REPORT INFORMATION
  Report Type: 
  Country: None (occurrence: None)
  Receive Date: 20040917
  Receipt Date: 20040802
  Transmission Date: 20050211
  Serious: No
  Sender: FDA-Public Use
  Company Number: US-JNJFOC-20040801075

PATIENT
  Age: 23 Year
  Sex: Female
  Weight: 58.0604 kg

DRUGS (3)
  1. ORTHO EVRA [Suspect]
     Indication: OVARIAN CYST
     Dosage: 1 DOSE(S), 3 IN 4 WEEK, TRANSDERMAL
     Route: 062
     Dates: start: 20031001
  2. ZANTAC [Concomitant]
  3. ANTIBIOTICS (ANTIBIOTICS) [Concomitant]

REACTIONS (3)
  - MENORRHAGIA [None]
  - MENSTRUAL DISORDER [None]
  - UTERINE SPASM [None]
